FAERS Safety Report 10096200 (Version 2)
Quarter: 2014Q2

REPORT INFORMATION
  Report Type: Spontaneous
  Country: FR (occurrence: FR)
  Receive Date: 20140422
  Receipt Date: 20140523
  Transmission Date: 20141212
  Serious: Yes (Hospitalization, Other)
  Sender: FDA-Public Use
  Company Number: FR-PFIZER INC-2014105965

PATIENT
  Age: 87 Year
  Sex: Female

DRUGS (4)
  1. TAHOR [Suspect]
     Dosage: 10 MG, DAILY
     Route: 048
     Dates: end: 20140304
  2. AMLOR [Suspect]
     Dosage: 5 MG, DAILY
     Dates: end: 20140307
  3. KARDEGIC [Suspect]
     Dosage: 75 MG, DAILY
     Dates: end: 20140305
  4. CATAPRESSAN [Suspect]
     Dosage: 0.15 MG, DAILY
     Dates: end: 20140305

REACTIONS (3)
  - Dermatomyositis [Not Recovered/Not Resolved]
  - Hepatocellular injury [Unknown]
  - Ovarian neoplasm [Unknown]
